FAERS Safety Report 7267240-8 (Version None)
Quarter: 2011Q1

REPORT INFORMATION
  Report Type: 
  Country: None (occurrence: None)
  Receive Date: 20110201
  Receipt Date: 20101220
  Transmission Date: 20110831
  Serious: Yes (Hospitalization)
  Sender: FDA-Public Use
  Company Number: US-BAYER-201034366NA

PATIENT
  Sex: Female
  Weight: 58.05 kg

DRUGS (7)
  1. YASMIN [Suspect]
     Indication: PRODUCT USED FOR UNKNOWN INDICATION
     Route: 048
     Dates: start: 20050401, end: 20051001
  2. YASMIN [Suspect]
     Route: 048
     Dates: start: 20051201, end: 20060101
  3. YASMIN [Suspect]
     Route: 048
     Dates: start: 20060201, end: 20060401
  4. YAZ [Suspect]
     Indication: PRODUCT USED FOR UNKNOWN INDICATION
     Route: 048
     Dates: start: 20071101, end: 20080301
  5. ACCUTANE [Concomitant]
  6. CIPRO [Concomitant]
     Indication: CERVICITIS
  7. ZITHROMAX [Concomitant]
     Indication: CERVICITIS

REACTIONS (2)
  - DEEP VEIN THROMBOSIS [None]
  - PAIN IN EXTREMITY [None]
